FAERS Safety Report 23328778 (Version 1)
Quarter: 2023Q4

REPORT INFORMATION
  Report Type: Report from Study
  Country: MX (occurrence: MX)
  Receive Date: 20231221
  Receipt Date: 20231221
  Transmission Date: 20240109
  Serious: Yes (Other)
  Sender: FDA-Public Use
  Company Number: MX-JNJFOC-20231232200

PATIENT
  Age: 46 Year
  Sex: Male
  Weight: 87 kg

DRUGS (1)
  1. SPRAVATO [Suspect]
     Active Substance: ESKETAMINE
     Indication: Depression
     Dosage: RECENT ADMINISTERED DOSE ON 09-DEC-2023
     Dates: start: 20231026

REACTIONS (4)
  - Hallucination [Unknown]
  - Thinking abnormal [Unknown]
  - Dizziness [Unknown]
  - Somnolence [Unknown]

NARRATIVE: CASE EVENT DATE: 20231209
